FAERS Safety Report 12441195 (Version 3)
Quarter: 2016Q4

REPORT INFORMATION
  Report Type: Spontaneous
  Country: JP (occurrence: JP)
  Receive Date: 20160607
  Receipt Date: 20161006
  Transmission Date: 20170207
  Serious: Yes (Life-Threatening, Hospitalization, Other)
  Sender: FDA-Public Use
  Company Number: JP-BRISTOL-MYERS SQUIBB COMPANY-BMS-2016-025044

PATIENT
  Age: 89 Year
  Sex: Female
  Weight: 45.9 kg

DRUGS (4)
  1. BONALON [Concomitant]
     Active Substance: ALENDRONATE SODIUM
     Indication: OSTEOPOROSIS
     Dosage: 35 MG, QD
     Route: 048
     Dates: start: 20120401, end: 20160317
  2. LANIRAPID [Concomitant]
     Active Substance: METILDIGOXIN
     Indication: CARDIAC FAILURE
     Dosage: 0.05 MG, QD
     Route: 048
     Dates: start: 20110401, end: 20160317
  3. ELIQUIS [Suspect]
     Active Substance: APIXABAN
     Indication: CEREBROVASCULAR ACCIDENT PROPHYLAXIS
     Dosage: 2.5 MG, BID
     Route: 048
     Dates: start: 20140317, end: 20160317
  4. AMLODIPINE BESILATE [Concomitant]
     Active Substance: AMLODIPINE BESYLATE
     Indication: HYPERTENSION
     Dosage: 1.25 MG, QD
     Route: 048
     Dates: start: 20160129, end: 20160317

REACTIONS (6)
  - Ventricular drainage [Unknown]
  - Brain contusion [Recovering/Resolving]
  - Cardiac failure [Unknown]
  - Cerebellar haemorrhage [Recovered/Resolved with Sequelae]
  - Skull fracture [Recovered/Resolved]
  - Haematoma evacuation [Unknown]

NARRATIVE: CASE EVENT DATE: 20160317
